FAERS Safety Report 8719283 (Version 2)
Quarter: 2012Q4

REPORT INFORMATION
  Report Type: 
  Country: BR (occurrence: BR)
  Receive Date: 20120813
  Receipt Date: 20120925
  Transmission Date: 20130627
  Serious: Yes (Death, Other)
  Sender: FDA-Public Use
  Company Number: BR-RANBAXY-2012R5-58795

PATIENT
  Age: 41 Year
  Sex: Male
  Weight: 95 kg

DRUGS (5)
  1. OXCARBAZEPINE [Suspect]
     Indication: ABDOMINAL PAIN UPPER
     Dosage: 600 mg, bid
     Route: 048
     Dates: start: 20120720, end: 201208
  2. OXCARBAZEPINE [Suspect]
     Indication: MUSCLE SPASMS
  3. CAPTOPRIL [Concomitant]
     Indication: HYPERTENSION
     Dosage: 10 mg, bid
     Route: 065
  4. DIAZEPAM [Concomitant]
     Indication: ABDOMINAL PAIN UPPER
     Dosage: UNK
     Route: 065
  5. DIAZEPAM [Concomitant]
     Indication: MUSCLE SPASMS

REACTIONS (2)
  - Swelling face [Recovered/Resolved]
  - Abdominal distension [Recovered/Resolved]
